FAERS Safety Report 9505154 (Version 1)
Quarter: 2013Q3

REPORT INFORMATION
  Report Type: Spontaneous
  Country: GR (occurrence: GR)
  Receive Date: 20130906
  Receipt Date: 20130906
  Transmission Date: 20140515
  Serious: Yes (Hospitalization)
  Sender: FDA-Public Use
  Company Number: GR-009507513-1309GRC000452

PATIENT
  Age: 61 Year
  Sex: Female

DRUGS (5)
  1. ROCURONIUM BROMIDE [Suspect]
     Indication: GENERAL ANAESTHESIA
  2. PROPOFOL [Suspect]
     Indication: INDUCTION OF ANAESTHESIA
  3. FENTANYL [Suspect]
     Indication: INDUCTION OF ANAESTHESIA
  4. DESFLURANE [Suspect]
     Indication: MAINTENANCE OF ANAESTHESIA
  5. REMIFENTANIL HYDROCHLORIDE [Suspect]
     Indication: MAINTENANCE OF ANAESTHESIA

REACTIONS (3)
  - Postoperative respiratory failure [Unknown]
  - Haemorrhage [Unknown]
  - Post polio syndrome [Unknown]
